FAERS Safety Report 9963834 (Version 1)
Quarter: 2014Q1

REPORT INFORMATION
  Report Type: Spontaneous
  Country: BR (occurrence: BR)
  Receive Date: 20140305
  Receipt Date: 20140305
  Transmission Date: 20141002
  Serious: Yes (Other)
  Sender: FDA-Public Use
  Company Number: PHHY2014BR024449

PATIENT
  Age: 69 Year
  Sex: Female
  Weight: 115 kg

DRUGS (6)
  1. GALVUS MET [Suspect]
     Indication: DIABETES MELLITUS INADEQUATE CONTROL
     Dosage: 1 DF (850MG VILDA AND 50MG METF), IN THE MORNING
     Route: 048
  2. OMEPRAZOLE [Suspect]
     Indication: ABDOMINAL PAIN UPPER
     Dosage: 1 DF, A DAY
     Route: 048
  3. OMEPRAZOLE [Suspect]
     Indication: DYSPEPSIA
  4. ATACAND [Suspect]
     Indication: HYPERTENSION
     Dosage: 1 DF, A DAY
     Route: 048
  5. APRAZOLAM (XANAX) [Suspect]
     Indication: SLEEP DISORDER
     Dosage: EVERY DAY
  6. DIOSMIN [Suspect]
     Indication: CARDIOVASCULAR DISORDER
     Dosage: UNK UKN, UNK

REACTIONS (12)
  - Arrhythmia [Recovered/Resolved]
  - Hepatic function abnormal [Not Recovered/Not Resolved]
  - Arthralgia [Not Recovered/Not Resolved]
  - Renal pain [Not Recovered/Not Resolved]
  - Somnolence [Recovered/Resolved]
  - Dysphagia [Not Recovered/Not Resolved]
  - Erythema [Not Recovered/Not Resolved]
  - Abdominal pain [Not Recovered/Not Resolved]
  - Headache [Recovered/Resolved]
  - Abdominal pain upper [Recovering/Resolving]
  - Dizziness [Recovered/Resolved]
  - Oedema peripheral [Not Recovered/Not Resolved]
